FAERS Safety Report 7720565-1 (Version None)
Quarter: 2011Q3

REPORT INFORMATION
  Report Type: 
  Country: None (occurrence: None)
  Receive Date: 20110831
  Receipt Date: 20110831
  Transmission Date: 20111222
  Serious: No
  Sender: FDA-Public Use
  Company Number: None

PATIENT
  Age: 35 Year
  Sex: Female
  Weight: 52.163 kg

DRUGS (1)
  1. NATURE MADE PRENATAL VITAMINS [Suspect]
     Indication: VITAMIN SUPPLEMENTATION
     Dosage: 1
     Route: 048
     Dates: start: 20110501, end: 20110822

REACTIONS (2)
  - MALAISE [None]
  - PRODUCT CONTAMINATION MICROBIAL [None]
